FAERS Safety Report 23059003 (Version 11)
Quarter: 2023Q4

REPORT INFORMATION
  Report Type: Report from Study
  Country: US (occurrence: US)
  Receive Date: 20231012
  Receipt Date: 20231218
  Transmission Date: 20240109
  Serious: Yes (Other)
  Sender: FDA-Public Use
  Company Number: US-002147023-NVSC2023US218058

PATIENT
  Age: 62 Year
  Sex: Female
  Weight: 70.7 kg

DRUGS (11)
  1. OXCARBAZEPINE [Suspect]
     Active Substance: OXCARBAZEPINE
     Indication: Neuralgia
     Dosage: 150 MG, BID
     Route: 048
     Dates: start: 20230106
  2. TRILEPTAL [Suspect]
     Active Substance: OXCARBAZEPINE
     Indication: Product used for unknown indication
     Dosage: UNK
     Route: 065
  3. MAYZENT [Suspect]
     Active Substance: SIPONIMOD
     Indication: Multiple sclerosis
     Dosage: 2 MG, QD
     Route: 048
     Dates: start: 20231104
  4. MAYZENT [Suspect]
     Active Substance: SIPONIMOD
     Dosage: UNK (STARTER PACK)
     Route: 065
     Dates: start: 20231113, end: 20231121
  5. HYDROCODONE [Suspect]
     Active Substance: HYDROCODONE
     Indication: Neuropathy peripheral
     Dosage: UNK
     Route: 065
  6. PERCOCET [Suspect]
     Active Substance: ACETAMINOPHEN\OXYCODONE HYDROCHLORIDE
     Indication: Neuropathy peripheral
     Dosage: UNK
     Route: 065
  7. COPAXONE [Suspect]
     Active Substance: GLATIRAMER ACETATE
     Indication: Product used for unknown indication
     Dosage: UNK
     Route: 065
  8. AUBAGIO [Suspect]
     Active Substance: TERIFLUNOMIDE
     Indication: Product used for unknown indication
     Dosage: UNK
     Route: 065
  9. AMBIEN [Suspect]
     Active Substance: ZOLPIDEM TARTRATE
     Indication: Product used for unknown indication
     Dosage: UNK
     Route: 065
  10. BISOPROLOL FUMARATE\HYDROCHLOROTHIAZIDE [Suspect]
     Active Substance: BISOPROLOL FUMARATE\HYDROCHLOROTHIAZIDE
     Indication: Blood pressure decreased
     Dosage: UNK
     Route: 065
  11. AMLODIPINE BESYLATE [Suspect]
     Active Substance: AMLODIPINE BESYLATE
     Indication: Blood pressure decreased
     Dosage: UNK
     Route: 065

REACTIONS (20)
  - Blood pressure increased [Recovered/Resolved]
  - Limb discomfort [Unknown]
  - Carpal tunnel syndrome [Recovering/Resolving]
  - Mitral valve prolapse [Unknown]
  - Immune system disorder [Unknown]
  - Pain in extremity [Unknown]
  - Heart rate irregular [Unknown]
  - Migraine [Recovering/Resolving]
  - Neoplasm [Unknown]
  - Illness [Unknown]
  - Asthenia [Unknown]
  - Amnesia [Recovering/Resolving]
  - Arthralgia [Unknown]
  - Blood cholesterol increased [Recovered/Resolved with Sequelae]
  - Fear [Unknown]
  - Headache [Recovered/Resolved]
  - Dizziness [Recovered/Resolved]
  - Heart rate decreased [Recovering/Resolving]
  - Dysphemia [Unknown]
  - Dyspnoea [Recovered/Resolved]

NARRATIVE: CASE EVENT DATE: 20231113
